FAERS Safety Report 5698054-8 (Version None)
Quarter: 2008Q2

REPORT INFORMATION
  Report Type: 
  Country: None (occurrence: None)
  Receive Date: 20080408
  Receipt Date: 20080401
  Transmission Date: 20081010
  Serious: Yes (Other)
  Sender: FDA-Public Use
  Company Number: US-ALLERGAN-0802465US

PATIENT
  Sex: Female

DRUGS (2)
  1. BOTOX COSMETIC [Suspect]
     Indication: SKIN WRINKLING
     Dosage: 21 UNITS, SINGLE
     Route: 030
     Dates: start: 20070803, end: 20070803
  2. VITAMINS [Concomitant]
     Indication: DRUG USE FOR UNKNOWN INDICATION

REACTIONS (5)
  - COMPLEX REGIONAL PAIN SYNDROME [None]
  - FACIAL PAIN [None]
  - INJECTION SITE BRUISING [None]
  - TELANGIECTASIA [None]
  - WRONG TECHNIQUE IN DRUG USAGE PROCESS [None]
